FAERS Safety Report 11312211 (Version 1)
Quarter: 2015Q3

REPORT INFORMATION
  Report Type: Spontaneous
  Country: US (occurrence: None)
  Receive Date: 20150723
  Receipt Date: 20150723
  Transmission Date: 20151125
  Serious: Yes (Hospitalization)
  Sender: FDA-Public Use
  Company Number: US-2015VAL000458

PATIENT
  Age: 67 Year
  Sex: Female

DRUGS (9)
  1. CALTRATE (CALCIUM CARBONATE, COLECALCIFEROL) [Concomitant]
  2. BUMEX (BUMETANIDE) [Concomitant]
  3. FOLIC ACID. [Concomitant]
     Active Substance: FOLIC ACID
  4. BABY ASPIRIN (ACETYLSALICYLIC ACID) [Concomitant]
     Active Substance: ASPIRIN
  5. POTASSIUM [Concomitant]
     Active Substance: POTASSIUM
  6. METOPROLOL TARTRATE (METOPROLOL TARTRATE) UNKNOWN [Suspect]
     Active Substance: METOPROLOL TARTRATE
     Indication: PRODUCT USED FOR UNKNOWN INDICATION
     Route: 048
     Dates: start: 201504, end: 2015
  7. GABAPENTIN ^PCD^ (GABAPENTIN) [Suspect]
     Active Substance: GABAPENTIN
     Indication: PRODUCT USED FOR UNKNOWN INDICATION
  8. VITAMIN E /00110501/ (TOCOPHEROL) [Concomitant]
  9. QUETIAPINE FUMARATE. [Concomitant]
     Active Substance: QUETIAPINE FUMARATE

REACTIONS (8)
  - Head injury [None]
  - Muscle strain [None]
  - Hyperventilation [None]
  - Chest discomfort [None]
  - Asthenia [None]
  - Fall [None]
  - Dizziness [None]
  - Pain [None]

NARRATIVE: CASE EVENT DATE: 2015
